FAERS Safety Report 7249710-1 (Version None)
Quarter: 2011Q1

REPORT INFORMATION
  Report Type: 
  Country: None (occurrence: None)
  Receive Date: 20110121
  Receipt Date: 20110121
  Transmission Date: 20110831
  Serious: Yes (Hospitalization)
  Sender: FDA-Public Use
  Company Number: None

PATIENT

DRUGS (1)
  1. ZYPREXA [Suspect]
     Dates: end: 20100101

REACTIONS (7)
  - ALOPECIA [None]
  - IRRITABILITY [None]
  - TREMOR [None]
  - POOR PERSONAL HYGIENE [None]
  - PSYCHIATRIC SYMPTOM [None]
  - AMNESIA [None]
  - DEPRESSED MOOD [None]
